FAERS Safety Report 8830850 (Version 1)
Quarter: 2012Q4

REPORT INFORMATION
  Report Type: 
  Country: CO (occurrence: CO)
  Receive Date: 20121008
  Receipt Date: 20121008
  Transmission Date: 20130627
  Serious: Yes (Other)
  Sender: FDA-Public Use
  Company Number: CO-PFIZER INC-2012245272

PATIENT
  Age: 87 Year
  Sex: Female

DRUGS (3)
  1. ZOLOF [Suspect]
     Dosage: 1 tablet at 100 mg, 1x/day
     Route: 048
     Dates: start: 2009
  2. NORVAS [Suspect]
     Dosage: 1 tablet at 5 mg, 1x/day
     Route: 048
     Dates: start: 2009
  3. NEXIUM [Concomitant]
     Dosage: 40 mg, 1x/day
     Route: 048

REACTIONS (1)
  - Hip fracture [Unknown]
